FAERS Safety Report 12135941 (Version 2)
Quarter: 2016Q3

REPORT INFORMATION
  Report Type: Spontaneous
  Country: GB (occurrence: GB)
  Receive Date: 20160302
  Receipt Date: 20160916
  Transmission Date: 20161109
  Serious: Yes (Life-Threatening, Other)
  Sender: FDA-Public Use
  Company Number: GB-DRREDDYS-GER/UKI/16/0076693

PATIENT
  Sex: Female
  Weight: 4.2 kg

DRUGS (4)
  1. OLANZAPINE. [Suspect]
     Active Substance: OLANZAPINE
     Indication: BIPOLAR DISORDER
     Route: 064
  2. EPIDURAL [Concomitant]
     Indication: ANAESTHESIA
  3. FLUOXETINE [Suspect]
     Active Substance: FLUOXETINE HYDROCHLORIDE
     Indication: PRODUCT USED FOR UNKNOWN INDICATION
     Route: 064
  4. PETHIDINE [Concomitant]
     Active Substance: MEPERIDINE
     Indication: ANAESTHESIA
     Route: 064

REACTIONS (6)
  - Respiratory arrest [Recovered/Resolved]
  - Foetal exposure during pregnancy [Recovered/Resolved]
  - Neonatal respiratory depression [Recovered/Resolved]
  - Convulsion neonatal [Recovered/Resolved]
  - Hypoxic-ischaemic encephalopathy [Unknown]
  - Sepsis [Unknown]

NARRATIVE: CASE EVENT DATE: 20151231
